FAERS Safety Report 20932194 (Version 1)
Quarter: 2022Q2

REPORT INFORMATION
  Report Type: Report from Study
  Country: CA (occurrence: CA)
  Receive Date: 20220608
  Receipt Date: 20220608
  Transmission Date: 20220721
  Serious: Yes (Death, Other)
  Sender: FDA-Public Use
  Company Number: CA-BAYER-2022A078015

PATIENT
  Age: 60 Year
  Sex: Male

DRUGS (1)
  1. EYLEA [Suspect]
     Active Substance: AFLIBERCEPT
     Indication: Diabetic retinal oedema
     Dosage: 2 MICROGRAM PER MILLIGRAM, UNK; SOLUTION FOR INJECTION
     Route: 031
     Dates: start: 20160930

REACTIONS (1)
  - Death [Fatal]
